FAERS Safety Report 24177224 (Version 2)
Quarter: 2024Q4

REPORT INFORMATION
  Report Type: Spontaneous
  Country: US (occurrence: US)
  Receive Date: 20240806
  Receipt Date: 20241008
  Transmission Date: 20250115
  Serious: No
  Sender: APOTEX
  Company Number: US-APOTEX-2023AP015405

PATIENT
  Sex: Male

DRUGS (1)
  1. MOXIFLOXACIN [Suspect]
     Active Substance: MOXIFLOXACIN
     Indication: Cataract operation
     Dosage: USE FOR 9 DAYS 1 DROP IN EACH EYE DAILY.
     Route: 047
     Dates: start: 20231008

REACTIONS (5)
  - Product dose omission issue [Unknown]
  - Product container issue [Unknown]
  - Product use issue [Unknown]
  - Accidental exposure to product [Unknown]
  - Visual impairment [Unknown]

NARRATIVE: CASE EVENT DATE: 20231001
